FAERS Safety Report 4578145-5 (Version None)
Quarter: 2005Q1

REPORT INFORMATION
  Report Type: 
  Country: None (occurrence: None)
  Receive Date: 20050209
  Receipt Date: 20050201
  Transmission Date: 20050727
  Serious: Yes (Life-Threatening)
  Sender: FDA-Public Use
  Company Number: 200510048BYL

PATIENT
  Age: 46 Year
  Sex: Female
  Weight: 80 kg

DRUGS (3)
  1. ADALAT [Suspect]
     Dosage: ORAL
     Route: 048
     Dates: start: 20041201
  2. VECTACIN (NETILMICIN SULFATE) [Suspect]
     Dosage: ORAL
     Route: 048
     Dates: start: 20040901
  3. SHIOSOL (SODIUM AUROTHIOMALATE) [Suspect]
     Dosage: ONCE, INTRAMUSCULAR
     Route: 030

REACTIONS (3)
  - DRUG ERUPTION [None]
  - PYREXIA [None]
  - RENAL DISORDER [None]
